FAERS Safety Report 8335948-9 (Version None)
Quarter: 2012Q2

REPORT INFORMATION
  Report Type: 
  Country: None (occurrence: None)
  Receive Date: 20120504
  Receipt Date: 20120426
  Transmission Date: 20120825
  Serious: No
  Sender: FDA-Public Use
  Company Number: US-PFIZER INC-2012051411

PATIENT
  Sex: Female

DRUGS (2)
  1. LO/OVRAL-28 [Suspect]
     Indication: OFF LABEL USE
     Dosage: UNK
  2. LO/OVRAL-28 [Suspect]
     Indication: MIGRAINE
     Dosage: UNK

REACTIONS (8)
  - DRUG INEFFECTIVE FOR UNAPPROVED INDICATION [None]
  - METRORRHAGIA [None]
  - PRODUCT QUALITY ISSUE [None]
  - MENSTRUATION IRREGULAR [None]
  - HORMONE LEVEL ABNORMAL [None]
  - MIGRAINE [None]
  - OFF LABEL USE [None]
  - POOR QUALITY DRUG ADMINISTERED [None]
